FAERS Safety Report 15898424 (Version 1)
Quarter: 2019Q1

REPORT INFORMATION
  Report Type: Spontaneous
  Country: US (occurrence: US)
  Receive Date: 20190201
  Receipt Date: 20190201
  Transmission Date: 20190417
  Serious: No
  Sender: FDA-Public Use
  Company Number: US-009507513-1901USA010283

PATIENT
  Age: 31 Year
  Sex: Female

DRUGS (5)
  1. LACTOBACILLUS (UNSPECIFIED) [Concomitant]
     Dosage: UNK
  2. CITALOPRAM [Concomitant]
     Active Substance: CITALOPRAM HYDROBROMIDE
     Dosage: UNK
  3. INVANZ [Suspect]
     Active Substance: ERTAPENEM SODIUM
     Dosage: 1 GRAM, QD (1 G DAILY)
     Dates: end: 20190124
  4. INVANZ [Suspect]
     Active Substance: ERTAPENEM SODIUM
     Indication: MYELITIS
     Dosage: 1 GRAM, QD (1 G DAILY)
     Dates: start: 20181212
  5. INVANZ [Suspect]
     Active Substance: ERTAPENEM SODIUM
     Dosage: 1 GRAM, QD (1 G DAILY)

REACTIONS (1)
  - Tooth discolouration [Not Recovered/Not Resolved]

NARRATIVE: CASE EVENT DATE: 20181212
